FAERS Safety Report 23533256 (Version 1)
Quarter: 2024Q1

REPORT INFORMATION
  Report Type: Spontaneous
  Country: JP (occurrence: JP)
  Receive Date: 20240216
  Receipt Date: 20240216
  Transmission Date: 20240409
  Serious: Yes (Hospitalization)
  Sender: FDA-Public Use
  Company Number: JP-Eisai-202213593_LEN-EC_P_1

PATIENT
  Age: 6 Decade
  Sex: Female

DRUGS (2)
  1. LENVIMA [Suspect]
     Active Substance: LENVATINIB
     Indication: Endometrial cancer
     Route: 048
     Dates: start: 20221216, end: 202301
  2. KEYTRUDA [Suspect]
     Active Substance: PEMBROLIZUMAB
     Indication: Endometrial cancer
     Route: 041
     Dates: start: 20221216, end: 202301

REACTIONS (11)
  - Rhabdomyolysis [Recovering/Resolving]
  - Disseminated intravascular coagulation [Unknown]
  - Pyrexia [Unknown]
  - Abdominal pain lower [Unknown]
  - Back pain [Unknown]
  - Blood creatine phosphokinase increased [Unknown]
  - Retroperitoneal haematoma [Unknown]
  - Nausea [Unknown]
  - Diarrhoea [Unknown]
  - Platelet count decreased [Unknown]
  - Renal impairment [Unknown]

NARRATIVE: CASE EVENT DATE: 20221220
